FAERS Safety Report 8126079-1 (Version None)
Quarter: 2012Q1

REPORT INFORMATION
  Report Type: 
  Country: None (occurrence: None)
  Receive Date: 20120209
  Receipt Date: 20120202
  Transmission Date: 20120608
  Serious: Yes (Hospitalization)
  Sender: FDA-Public Use
  Company Number: PHHY2012FR010052

PATIENT
  Age: 75 Year
  Sex: Female
  Weight: 76 kg

DRUGS (9)
  1. ZOLEDRONOC ACID [Suspect]
     Dosage: UNK UKN, UNK
     Route: 042
     Dates: start: 20110501
  2. BISOPROLOL FUMARATE [Concomitant]
     Dosage: UNK UKN, UNK
  3. LANTUS [Concomitant]
     Dosage: UNK UKN, UNK
  4. ATORVASTATIN [Concomitant]
     Dosage: UNK UKN, UNK
  5. LEVOTHYROXINE SODIUM [Concomitant]
     Dosage: 75 UG, UNK
  6. LEVOTHYROXINE SODIUM [Concomitant]
     Dosage: 10 UG, UNK
  7. NOVORAPID [Concomitant]
     Dosage: UNK UKN, UNK
  8. ASPIRIN [Concomitant]
     Dosage: UNK UKN, UNK
  9. LASIX [Concomitant]
     Dosage: UNK UKN, UNK

REACTIONS (2)
  - DYSPNOEA [None]
  - BRONCHITIS [None]
